FAERS Safety Report 18338574 (Version 6)
Quarter: 2022Q3

REPORT INFORMATION
  Report Type: Spontaneous
  Country: US (occurrence: None)
  Receive Date: 20201002
  Receipt Date: 20220811
  Transmission Date: 20221027
  Serious: Yes (Hospitalization, Disabling, Other)
  Sender: FDA-Public Use
  Company Number: 2020SF25193

PATIENT
  Age: 54 Year
  Sex: Male
  Weight: 169.2 kg

DRUGS (80)
  1. FARXIGA [Suspect]
     Active Substance: DAPAGLIFLOZIN PROPANEDIOL
     Indication: Type 2 diabetes mellitus
     Route: 048
     Dates: start: 20140707, end: 20181107
  2. FARXIGA [Suspect]
     Active Substance: DAPAGLIFLOZIN PROPANEDIOL
     Indication: Weight decreased
     Route: 048
     Dates: start: 20140707, end: 20181107
  3. FARXIGA [Suspect]
     Active Substance: DAPAGLIFLOZIN PROPANEDIOL
     Indication: Blood pressure decreased
     Route: 048
     Dates: start: 20140707, end: 20181107
  4. FARXIGA [Suspect]
     Active Substance: DAPAGLIFLOZIN PROPANEDIOL
     Indication: Type 2 diabetes mellitus
     Dosage: 5.0MG UNKNOWN
     Route: 048
     Dates: start: 20181031
  5. FARXIGA [Suspect]
     Active Substance: DAPAGLIFLOZIN PROPANEDIOL
     Indication: Weight decreased
     Dosage: 5.0MG UNKNOWN
     Route: 048
     Dates: start: 20181031
  6. FARXIGA [Suspect]
     Active Substance: DAPAGLIFLOZIN PROPANEDIOL
     Indication: Blood pressure decreased
     Dosage: 5.0MG UNKNOWN
     Route: 048
     Dates: start: 20181031
  7. FARXIGA [Suspect]
     Active Substance: DAPAGLIFLOZIN PROPANEDIOL
     Indication: Type 2 diabetes mellitus
     Dosage: 5.0MG UNKNOWN
     Route: 048
     Dates: start: 2014, end: 2017
  8. FARXIGA [Suspect]
     Active Substance: DAPAGLIFLOZIN PROPANEDIOL
     Indication: Weight decreased
     Dosage: 5.0MG UNKNOWN
     Route: 048
     Dates: start: 2014, end: 2017
  9. FARXIGA [Suspect]
     Active Substance: DAPAGLIFLOZIN PROPANEDIOL
     Indication: Blood pressure decreased
     Dosage: 5.0MG UNKNOWN
     Route: 048
     Dates: start: 2014, end: 2017
  10. FARXIGA [Suspect]
     Active Substance: DAPAGLIFLOZIN PROPANEDIOL
     Indication: Type 2 diabetes mellitus
     Dosage: 5.0MG UNKNOWN
     Route: 048
     Dates: start: 2017, end: 2018
  11. FARXIGA [Suspect]
     Active Substance: DAPAGLIFLOZIN PROPANEDIOL
     Indication: Weight decreased
     Dosage: 5.0MG UNKNOWN
     Route: 048
     Dates: start: 2017, end: 2018
  12. FARXIGA [Suspect]
     Active Substance: DAPAGLIFLOZIN PROPANEDIOL
     Indication: Blood pressure decreased
     Dosage: 5.0MG UNKNOWN
     Route: 048
     Dates: start: 2017, end: 2018
  13. METFORMIN [Concomitant]
     Active Substance: METFORMIN HYDROCHLORIDE
     Indication: Diabetes mellitus
     Dosage: 850.0MG UNKNOWN
     Dates: start: 2013
  14. GLYBURIDE [Concomitant]
     Active Substance: GLYBURIDE
     Indication: Diabetes mellitus
     Dosage: 6.0MG UNKNOWN
     Dates: start: 2013, end: 2015
  15. ARCIGA [Concomitant]
  16. LOSARTAN [Concomitant]
     Active Substance: LOSARTAN
  17. ZOSYN [Concomitant]
     Active Substance: PIPERACILLIN SODIUM\TAZOBACTAM SODIUM
  18. VANCOMYCIN [Concomitant]
     Active Substance: VANCOMYCIN
  19. GAMMA-HYDROXYBUTYRATE/OXYBATE SODIUM [Concomitant]
  20. SALINE [Concomitant]
     Active Substance: SODIUM CHLORIDE
  21. CLINDAMYCIN [Concomitant]
     Active Substance: CLINDAMYCIN
  22. FENTANYL [Concomitant]
     Active Substance: FENTANYL
  23. LIDOCAINE [Concomitant]
     Active Substance: LIDOCAINE
  24. PROPOFOL [Concomitant]
     Active Substance: PROPOFOL
  25. SUCCINYLCHOLINE [Concomitant]
     Active Substance: SUCCINYLCHOLINE
  26. NORMOSOL-R [Concomitant]
     Active Substance: MAGNESIUM CHLORIDE\POTASSIUM CHLORIDE\SODIUM ACETATE ANHYDROUS\SODIUM CHLORIDE\SODIUM GLUCONATE
  27. PHENYLEPHRINE [Concomitant]
     Active Substance: PHENYLEPHRINE HYDROCHLORIDE
  28. SUGAMMADEX [Concomitant]
     Active Substance: SUGAMMADEX
  29. KETAMINE [Concomitant]
     Active Substance: KETAMINE
  30. ROCURONIUM [Concomitant]
     Active Substance: ROCURONIUM BROMIDE
  31. OFIRMEV [Concomitant]
     Active Substance: ACETAMINOPHEN
  32. ONDANSETRON [Concomitant]
     Active Substance: ONDANSETRON
  33. FOLEY [Concomitant]
  34. BETADINE [Concomitant]
     Active Substance: POVIDONE-IODINE
  35. MAGNESIUM OXIDE [Concomitant]
     Active Substance: MAGNESIUM OXIDE
  36. POTASSIUM CHLORIDE [Concomitant]
     Active Substance: POTASSIUM CHLORIDE
  37. FERROUS SULFATE [Concomitant]
     Active Substance: FERROUS SULFATE
  38. AMPICILLIN [Concomitant]
     Active Substance: AMPICILLIN
  39. CEFTRIAXONE [Concomitant]
     Active Substance: CEFTRIAXONE
  40. PENICILLIN G [Concomitant]
     Active Substance: PENICILLIN G
  41. ASCORBIC ACID [Concomitant]
     Active Substance: ASCORBIC ACID
  42. VIAGRA [Concomitant]
     Active Substance: SILDENAFIL CITRATE
  43. SIMVASTATIN [Concomitant]
     Active Substance: SIMVASTATIN
  44. WELCHOL [Concomitant]
     Active Substance: COLESEVELAM HYDROCHLORIDE
  45. VICTOZA [Concomitant]
     Active Substance: LIRAGLUTIDE
     Indication: Diabetes mellitus
     Dosage: 18.0MG UNKNOWN
     Dates: start: 2014, end: 2015
  46. CICLOPIROX [Concomitant]
     Active Substance: CICLOPIROX
  47. CIALIS [Concomitant]
     Active Substance: TADALAFIL
  48. BYDUREON [Concomitant]
     Active Substance: EXENATIDE
  49. CRANBERRY [Concomitant]
     Active Substance: CRANBERRY
  50. VITAMIN D3 [Concomitant]
     Active Substance: CHOLECALCIFEROL
  51. ACTOS [Concomitant]
     Active Substance: PIOGLITAZONE HYDROCHLORIDE
  52. IBUPROFEN [Concomitant]
     Active Substance: IBUPROFEN
  53. KEFLEX [Concomitant]
     Active Substance: CEPHALEXIN
  54. NORCO [Concomitant]
     Active Substance: ACETAMINOPHEN\HYDROCODONE BITARTRATE
  55. ISOVUE [Concomitant]
     Active Substance: IOPAMIDOL
  56. NAPROSYN [Concomitant]
     Active Substance: NAPROXEN
  57. DOCUSATE SODIUM [Concomitant]
     Active Substance: DOCUSATE SODIUM
  58. CEPACOL [Concomitant]
     Active Substance: BENZOCAINE
  59. LEVOPHED [Concomitant]
     Active Substance: NOREPINEPHRINE BITARTRATE
  60. MYCOSTATIN [Concomitant]
     Active Substance: NYSTATIN
  61. MORPHINE [Concomitant]
     Active Substance: MORPHINE
  62. HABITROL [Concomitant]
     Active Substance: NICOTINE
  63. LOVENOX [Concomitant]
     Active Substance: ENOXAPARIN SODIUM
  64. IRON DEXTRAN [Concomitant]
     Active Substance: IRON DEXTRAN
  65. LANTUS SOLOSTAR [Concomitant]
     Active Substance: INSULIN GLARGINE
  66. METFORMIN HYDROCHLORIDE [Concomitant]
     Active Substance: METFORMIN HYDROCHLORIDE
  67. LOSARTAN POTASSIUM [Concomitant]
     Active Substance: LOSARTAN POTASSIUM
  68. NOVOLOG [Concomitant]
     Active Substance: INSULIN ASPART
     Indication: Diabetes mellitus
  69. SULFAMETHOXAZOLE\TRIMETHOPRIM [Concomitant]
     Active Substance: SULFAMETHOXAZOLE\TRIMETHOPRIM
  70. NOVOLIN NOS [Concomitant]
     Active Substance: INSULIN HUMAN
  71. OXYCODONE [Concomitant]
     Active Substance: OXYCODONE
  72. MELATONIN [Concomitant]
     Active Substance: MELATONIN
  73. POLYETHYLENE GLYCOL [Concomitant]
     Active Substance: POLYETHYLENE GLYCOL
  74. TRICOR [Concomitant]
     Active Substance: FENOFIBRATE
  75. GEMFIBROZIL [Concomitant]
     Active Substance: GEMFIBROZIL
  76. DOXYCYCLINE HYCLATE [Concomitant]
     Active Substance: DOXYCYCLINE HYCLATE
  77. LISINOPRIL [Concomitant]
     Active Substance: LISINOPRIL
  78. TRESIBA [Concomitant]
     Active Substance: INSULIN DEGLUDEC
     Indication: Diabetes mellitus
     Dates: start: 2021
  79. METOPROLOL [Concomitant]
     Active Substance: METOPROLOL
     Indication: Dyspepsia
     Dosage: 25.0MG UNKNOWN
     Dates: start: 2021
  80. CELEBREX [Concomitant]
     Active Substance: CELECOXIB
     Indication: Arthritis
     Dosage: 200.0MG UNKNOWN
     Dates: start: 2020

REACTIONS (14)
  - Fournier^s gangrene [Unknown]
  - Sepsis [Unknown]
  - Perineal abscess [Unknown]
  - Scrotal abscess [Unknown]
  - Abscess limb [Unknown]
  - Tooth abscess [Unknown]
  - Septic shock [Unknown]
  - Cellulitis [Unknown]
  - Subcutaneous abscess [Unknown]
  - Metabolic acidosis [Unknown]
  - Groin abscess [Unknown]
  - Necrotising fasciitis [Unknown]
  - Genital abscess [Unknown]
  - Anal abscess [Unknown]

NARRATIVE: CASE EVENT DATE: 20180101
